FAERS Safety Report 16363769 (Version 1)
Quarter: 2019Q2

REPORT INFORMATION
  Report Type: Spontaneous
  Country: US (occurrence: US)
  Receive Date: 20190528
  Receipt Date: 20190528
  Transmission Date: 20190711
  Serious: Yes (Life-Threatening, Congenital Anomaly, Other)
  Sender: FDA-Public Use
  Company Number: PHEH2019US022750

PATIENT
  Sex: Female

DRUGS (1)
  1. ZOFRAN [Suspect]
     Active Substance: ONDANSETRON HYDROCHLORIDE
     Indication: FOETAL EXPOSURE DURING PREGNANCY
     Route: 064

REACTIONS (7)
  - Emotional distress [Unknown]
  - Injury [Not Recovered/Not Resolved]
  - Foetal exposure during pregnancy [Unknown]
  - Cardiac flutter [Unknown]
  - Arrhythmia neonatal [Unknown]
  - Heart disease congenital [Unknown]
  - Pain [Unknown]
